FAERS Safety Report 17393508 (Version 1)
Quarter: 2020Q1

REPORT INFORMATION
  Report Type: Spontaneous
  Country: US (occurrence: US)
  Receive Date: 20200208
  Receipt Date: 20200208
  Transmission Date: 20200409
  Serious: Yes (Other)
  Sender: FDA-Public Use
  Company Number: US-AMGEN-USASP2020016975

PATIENT

DRUGS (4)
  1. IBRANCE [Suspect]
     Active Substance: PALBOCICLIB
     Indication: PRODUCT USED FOR UNKNOWN INDICATION
     Dosage: 100 MILLIGRAM,[DAILY ON DAYS 1-21, OFF 7 DAYS
     Route: 048
     Dates: start: 20170109
  2. XGEVA [Suspect]
     Active Substance: DENOSUMAB
     Indication: PRODUCT USED FOR UNKNOWN INDICATION
     Dosage: UNK
     Route: 065
     Dates: start: 201709
  3. LORATADINE. [Concomitant]
     Active Substance: LORATADINE
  4. VITAMIN D3 [Concomitant]
     Active Substance: CHOLECALCIFEROL

REACTIONS (4)
  - Adverse drug reaction [Unknown]
  - Sinus perforation [Unknown]
  - Jaw operation [Unknown]
  - Skin fissures [Recovering/Resolving]

NARRATIVE: CASE EVENT DATE: 201907
